FAERS Safety Report 9188406 (Version 1)
Quarter: 2012Q4

REPORT INFORMATION
  Report Type: 
  Country: US (occurrence: US)
  Receive Date: 20121205
  Receipt Date: 20121205
  Transmission Date: 20130627
  Serious: No
  Sender: FDA-Public Use
  Company Number: US-BAYER-2012-126070

PATIENT
  Age: 47 Year
  Sex: Female

DRUGS (1)
  1. MIRENA [Suspect]
     Indication: HORMONAL IMBALANCE
     Dosage: 20 mcg/24hr, CONT
     Route: 015
     Dates: start: 20121119

REACTIONS (2)
  - Vaginal infection [None]
  - Off label use [None]
